FAERS Safety Report 8837837 (Version 1)
Quarter: 2012Q4

REPORT INFORMATION
  Report Type: 
  Country: US (occurrence: US)
  Receive Date: 20121012
  Receipt Date: 20121012
  Transmission Date: 20130627
  Serious: Yes (Hospitalization)
  Sender: FDA-Public Use
  Company Number: US-ROCHE-1138717

PATIENT
  Age: 67 Year
  Sex: Male

DRUGS (8)
  1. AVASTIN [Suspect]
     Indication: COLORECTAL CANCER METASTATIC
     Route: 042
     Dates: start: 20120910, end: 20120925
  2. ONDANSETRON [Concomitant]
     Indication: NAUSEA
     Route: 042
     Dates: start: 20120910
  3. ONDANSETRON [Concomitant]
     Route: 048
  4. DEXAMETHASONE [Concomitant]
     Indication: NAUSEA
     Route: 042
     Dates: start: 20120910
  5. FLUOROURACIL [Concomitant]
     Indication: COLORECTAL CANCER METASTATIC
     Route: 042
     Dates: start: 20120910
  6. FLUOROURACIL [Concomitant]
     Route: 042
     Dates: start: 20120910
  7. OXALIPLATIN [Concomitant]
     Indication: COLORECTAL CANCER METASTATIC
     Route: 042
     Dates: start: 20120910
  8. LEUCOVORIN [Concomitant]
     Indication: COLORECTAL CANCER METASTATIC
     Route: 042
     Dates: start: 20120910

REACTIONS (4)
  - Pulmonary embolism [Recovering/Resolving]
  - Deep vein thrombosis [Recovering/Resolving]
  - Atrial thrombosis [Recovering/Resolving]
  - Cardiac enzymes increased [Unknown]
